FAERS Safety Report 9173665 (Version 1)
Quarter: 2013Q1

REPORT INFORMATION
  Report Type: Report from Study
  Country: KR (occurrence: KR)
  Receive Date: 20130320
  Receipt Date: 20130320
  Transmission Date: 20140127
  Serious: Yes (Hospitalization)
  Sender: FDA-Public Use
  Company Number: KR-AMGEN-KORCT2013018440

PATIENT
  Age: 57 Year
  Sex: Female

DRUGS (13)
  1. DARBEPOETIN ALFA [Suspect]
     Indication: NEPHROGENIC ANAEMIA
     Dosage: 60 MUG, UNK
     Route: 058
     Dates: start: 20120209
  2. DARBEPOETIN ALFA [Suspect]
     Dosage: 60 MUG, UNK
     Route: 058
     Dates: start: 20120423, end: 20120501
  3. AMLODIPINE CAMSILATE [Concomitant]
     Dosage: 5 MG, UNK
     Route: 048
     Dates: start: 20120114
  4. FEROBA [Concomitant]
     Dosage: 256 MG, UNK
     Route: 048
     Dates: start: 20120209
  5. LOSARTAN POTASSIUM [Concomitant]
     Dosage: 100 MG, UNK
     Route: 048
     Dates: start: 20120114
  6. GANATON [Concomitant]
     Dosage: 200 MG, UNK
     Route: 048
     Dates: start: 20120209
  7. CLIDOL [Concomitant]
     Dosage: 900 MG, UNK
     Route: 048
     Dates: start: 20120320
  8. CIPROCTAL [Concomitant]
     Dosage: 2000 MG, UNK
     Route: 048
     Dates: start: 20120320
  9. STOGAR [Concomitant]
     Dosage: 40 MG, UNK
     Route: 048
     Dates: start: 20120410
  10. RECOMIDE [Concomitant]
     Dosage: 900 MG, UNK
     Route: 048
     Dates: start: 20120410
  11. GASTREX [Concomitant]
     Dosage: 6 G, UNK
     Route: 048
     Dates: start: 20120410
  12. LASIX [Concomitant]
     Dosage: 20 MG, UNK
     Route: 042
     Dates: start: 20120114, end: 20120423
  13. PENORAMIN [Concomitant]
     Dosage: 4 MG, UNK
     Route: 042
     Dates: start: 20120114, end: 20120423

REACTIONS (2)
  - Cyst rupture [Unknown]
  - Flank pain [Unknown]
